FAERS Safety Report 10077020 (Version 1)
Quarter: 2014Q2

REPORT INFORMATION
  Report Type: Spontaneous
  Country: US (occurrence: US)
  Receive Date: 20140414
  Receipt Date: 20140414
  Transmission Date: 20141212
  Serious: Yes (Other)
  Sender: FDA-Public Use
  Company Number: US-PFIZER INC-2014102842

PATIENT
  Age: 35 Year
  Sex: Female
  Weight: 105 kg

DRUGS (1)
  1. CHANTIX [Suspect]
     Indication: SMOKING CESSATION THERAPY
     Dosage: 0.5 MG, DAILY
     Dates: start: 20130311, end: 20130318

REACTIONS (6)
  - Cerebrovascular accident [Unknown]
  - Balance disorder [Not Recovered/Not Resolved]
  - Ear disorder [Not Recovered/Not Resolved]
  - VIIth nerve paralysis [Not Recovered/Not Resolved]
  - Visual acuity reduced [Not Recovered/Not Resolved]
  - Depression [Not Recovered/Not Resolved]
